FAERS Safety Report 11595180 (Version 1)
Quarter: 2015Q4

REPORT INFORMATION
  Report Type: Spontaneous
  Country: US (occurrence: US)
  Receive Date: 20151006
  Receipt Date: 20151006
  Transmission Date: 20160304
  Serious: No
  Sender: FDA-Public Use
  Company Number: US-LUPIN PHARMACEUTICALS INC.-E2B_00004135

PATIENT
  Age: 51 Year
  Sex: Male

DRUGS (12)
  1. INSULIN [Concomitant]
     Active Substance: INSULIN NOS
     Indication: DIABETES MELLITUS
     Route: 065
  2. DULOXETINE DELAYED-RELEASE 30 MG CAPSULES USP [Suspect]
     Active Substance: DULOXETINE
     Indication: ANXIETY
     Route: 048
  3. CARVEDILOL. [Suspect]
     Active Substance: CARVEDILOL
     Indication: CARDIAC DISORDER
     Route: 065
  4. LOSARTAN POTASSIUM. [Concomitant]
     Active Substance: LOSARTAN POTASSIUM
     Indication: PRODUCT USED FOR UNKNOWN INDICATION
     Route: 065
  5. DULOXETINE DELAYED-RELEASE 60 MG CAPSULES USP [Suspect]
     Active Substance: DULOXETINE
     Indication: ANXIETY
     Route: 048
  6. SYNTHROID [Concomitant]
     Active Substance: LEVOTHYROXINE SODIUM
     Indication: THYROID DISORDER
     Route: 065
  7. TAMSULOSINE HCL [Concomitant]
     Active Substance: TAMSULOSIN
     Indication: PRODUCT USED FOR UNKNOWN INDICATION
     Route: 065
  8. DULOXETINE DELAYED-RELEASE 30 MG CAPSULES USP [Suspect]
     Active Substance: DULOXETINE
     Indication: PAIN
  9. ALPRAZOLAM. [Concomitant]
     Active Substance: ALPRAZOLAM
     Indication: ANXIETY
     Route: 065
  10. OXYCODONE [Concomitant]
     Active Substance: OXYCODONE
     Indication: PRODUCT USED FOR UNKNOWN INDICATION
     Route: 065
  11. DULOXETINE DELAYED-RELEASE 60 MG CAPSULES USP [Suspect]
     Active Substance: DULOXETINE
     Indication: PAIN
     Dosage: 6 SMALL PILLS FROM THE DULOXETINE 60 MG CAPSULE IN THE MORNING, AND 60 MG AT NIGHT.
     Route: 048
     Dates: start: 20150823
  12. ATORVASTATIN [Concomitant]
     Active Substance: ATORVASTATIN
     Indication: PRODUCT USED FOR UNKNOWN INDICATION
     Route: 065

REACTIONS (3)
  - Wrong technique in product usage process [Unknown]
  - Weight increased [Not Recovered/Not Resolved]
  - Somnolence [Not Recovered/Not Resolved]

NARRATIVE: CASE EVENT DATE: 20150823
